FAERS Safety Report 25582754 (Version 1)
Quarter: 2025Q3

REPORT INFORMATION
  Report Type: Spontaneous
  Country: US (occurrence: US)
  Receive Date: 20250720
  Receipt Date: 20250720
  Transmission Date: 20251020
  Serious: No
  Sender: SANOFI AVENTIS
  Company Number: US-SA-2025SA204212

PATIENT
  Sex: Female

DRUGS (4)
  1. DUPIXENT [Suspect]
     Active Substance: DUPILUMAB
     Indication: Asthma
     Dosage: 300 MG, QOW
     Route: 058
     Dates: start: 20240910
  2. MELOXICAM [Concomitant]
     Active Substance: MELOXICAM
  3. MUCINEX [Concomitant]
     Active Substance: GUAIFENESIN
  4. DOXYCYCLINE HYCLATE [Concomitant]
     Active Substance: DOXYCYCLINE HYCLATE

REACTIONS (4)
  - Gingival pain [Unknown]
  - Peripheral swelling [Unknown]
  - Toothache [Unknown]
  - Headache [Unknown]
